FAERS Safety Report 5137169-X (Version None)
Quarter: 2006Q4

REPORT INFORMATION
  Report Type: 
  Country: None (occurrence: None)
  Receive Date: 20061030
  Receipt Date: 20050901
  Transmission Date: 20070319
  Serious: No
  Sender: FDA-Public Use
  Company Number: US-GLAXOSMITHKLINE-A0573146A

PATIENT
  Sex: Female

DRUGS (2)
  1. SERETIDE [Suspect]
     Indication: ASTHMA
     Dosage: 25MCG UNKNOWN
     Route: 055
     Dates: start: 20050501
  2. PULMICORT [Concomitant]

REACTIONS (2)
  - MIGRAINE [None]
  - TREMOR [None]
